FAERS Safety Report 9857993 (Version 2)
Quarter: 2014Q1

REPORT INFORMATION
  Report Type: Report from Study
  Country: DE (occurrence: DE)
  Receive Date: 20140131
  Receipt Date: 20140131
  Transmission Date: 20141002
  Serious: Yes (Hospitalization)
  Sender: FDA-Public Use
  Company Number: PHHO2010DE14894

PATIENT
  Age: 38 Year
  Sex: Male

DRUGS (2)
  1. SOM230 [Suspect]
     Indication: BLOOD GLUCOSE
     Dosage: 600 UG, BID
     Route: 058
     Dates: start: 20100824, end: 20100830
  2. LIRAGLUTIDE [Suspect]
     Indication: BLOOD GLUCOSE
     Dosage: 1.2 MG, QD
     Route: 058
     Dates: start: 20100824, end: 20100829

REACTIONS (19)
  - Cholestasis [Recovered/Resolved]
  - Jaundice [Recovered/Resolved]
  - Blood bilirubin increased [Recovered/Resolved]
  - Pruritus [Recovered/Resolved]
  - Nausea [Recovered/Resolved]
  - Chromaturia [Recovered/Resolved]
  - Fatigue [Recovered/Resolved]
  - Malaise [Recovered/Resolved]
  - Asthenia [Recovered/Resolved]
  - Hypersensitivity [Recovered/Resolved]
  - Irritability [Recovered/Resolved]
  - Activities of daily living impaired [Recovered/Resolved]
  - General physical condition abnormal [Recovered/Resolved]
  - Disturbance in social behaviour [Recovered/Resolved]
  - Procedural pain [Recovered/Resolved]
  - Parosmia [Recovered/Resolved]
  - Dysgeusia [Recovered/Resolved]
  - Influenza like illness [Recovered/Resolved]
  - Enteritis [Recovered/Resolved]
